FAERS Safety Report 6120652-8 (Version None)
Quarter: 2009Q1

REPORT INFORMATION
  Report Type: 
  Country: None (occurrence: None)
  Receive Date: 20090312
  Receipt Date: 20090312
  Transmission Date: 20090719
  Serious: No
  Sender: FDA-Public Use
  Company Number: None

PATIENT
  Sex: Male
  Weight: 88.4514 kg

DRUGS (1)
  1. CRESTOR [Suspect]
     Indication: BLOOD CHOLESTEROL INCREASED
     Dosage: 20MG EVERYDAY PO
     Route: 048
     Dates: start: 20080105, end: 20090309

REACTIONS (2)
  - LIVER FUNCTION TEST ABNORMAL [None]
  - LIVER INJURY [None]
